FAERS Safety Report 8393900-1 (Version None)
Quarter: 2012Q2

REPORT INFORMATION
  Report Type: 
  Country: None (occurrence: None)
  Receive Date: 20120524
  Receipt Date: 20120502
  Transmission Date: 20120825
  Serious: Yes (Death)
  Sender: FDA-Public Use
  Company Number: 2012-225

PATIENT
  Age: 88 Year
  Sex: Female

DRUGS (1)
  1. FAZACLO ODT [Suspect]
     Dosage: 12.5-50 MG, QD, ORAL
     Route: 048
     Dates: start: 20100621, end: 20120222

REACTIONS (1)
  - DEATH [None]
